FAERS Safety Report 12323803 (Version 3)
Quarter: 2016Q2

REPORT INFORMATION
  Report Type: Spontaneous
  Country: US (occurrence: US)
  Receive Date: 20160502
  Receipt Date: 20160621
  Transmission Date: 20160815
  Serious: Yes (Death, Life-Threatening)
  Sender: FDA-Public Use
  Company Number: US-PFIZER INC-2016229961

PATIENT
  Age: 87 Year
  Sex: Female

DRUGS (2)
  1. AMLODIPINE BESILATE [Suspect]
     Active Substance: AMLODIPINE BESYLATE
     Dosage: 5 MG, UNK (MORE THAN 100 TABLETS)
     Route: 048
  2. CARVEDILOL. [Suspect]
     Active Substance: CARVEDILOL
     Dosage: 3.125 G, UNK (MORE THAN 100 TABLETS)
     Route: 048

REACTIONS (6)
  - Acute respiratory distress syndrome [Fatal]
  - Toxicity to various agents [Fatal]
  - Overdose [Fatal]
  - Circulatory collapse [Fatal]
  - Metabolic acidosis [Fatal]
  - Acute kidney injury [Recovering/Resolving]
